FAERS Safety Report 17389466 (Version 1)
Quarter: 2020Q1

REPORT INFORMATION
  Report Type: Report from Study
  Country: CO (occurrence: CO)
  Receive Date: 20200207
  Receipt Date: 20200207
  Transmission Date: 20200409
  Serious: Yes (Other)
  Sender: FDA-Public Use
  Company Number: CO-ROCHE-2481152

PATIENT
  Sex: Male

DRUGS (2)
  1. CELLCEPT [Suspect]
     Active Substance: MYCOPHENOLATE MOFETIL\MYCOPHENOLATE MOFETIL HYDROCHLORIDE
     Indication: PRODUCT USED FOR UNKNOWN INDICATION
     Route: 065
  2. TACROLIMUS. [Concomitant]
     Active Substance: TACROLIMUS

REACTIONS (7)
  - Kidney enlargement [Unknown]
  - Gait inability [Unknown]
  - Renal impairment [Unknown]
  - Pain [Unknown]
  - Blood creatinine increased [Unknown]
  - Pain in extremity [Unknown]
  - Feeling abnormal [Unknown]
